FAERS Safety Report 7908521-1 (Version None)
Quarter: 2011Q4

REPORT INFORMATION
  Report Type: 
  Country: None (occurrence: None)
  Receive Date: 20111111
  Receipt Date: 20111107
  Transmission Date: 20120403
  Serious: Yes (Hospitalization, Other)
  Sender: FDA-Public Use
  Company Number: PHEH2011US008890

PATIENT
  Age: 21 Year
  Sex: Female

DRUGS (3)
  1. PULMOZYME [Concomitant]
  2. ANTIBIOTICS [Concomitant]
  3. TOBI [Suspect]
     Indication: CYSTIC FIBROSIS
     Dosage: 300 MG INHALE 1 AMPOULE VIA NEBULIZER EVERY 12 HOURS ALTERNATING 28 DAYS ON/ 28 DAYS OFF
     Dates: start: 20080807

REACTIONS (1)
  - INFECTIVE PULMONARY EXACERBATION OF CYSTIC FIBROSIS [None]
